FAERS Safety Report 11340128 (Version 2)
Quarter: 2017Q3

REPORT INFORMATION
  Report Type: Spontaneous
  Country: US (occurrence: US)
  Receive Date: 20150805
  Receipt Date: 20170919
  Transmission Date: 20171127
  Serious: Yes (Other)
  Sender: FDA-Public Use
  Company Number: US-SUN PHARMACEUTICAL INDUSTRIES LTD-2015US-101181

PATIENT
  Age: 60 Year
  Sex: Female

DRUGS (1)
  1. PREDNISONE. [Suspect]
     Active Substance: PREDNISONE
     Indication: IGA NEPHROPATHY
     Dosage: 60 MG, DAILY
     Route: 065

REACTIONS (3)
  - Neutrophil morphology abnormal [Unknown]
  - Eosinophil morphology abnormal [Unknown]
  - Basophil morphology abnormal [Unknown]
